FAERS Safety Report 18477631 (Version 1)
Quarter: 2020Q4

REPORT INFORMATION
  Report Type: Spontaneous
  Country: IT (occurrence: IT)
  Receive Date: 20201107
  Receipt Date: 20201107
  Transmission Date: 20210114
  Serious: Yes (Death, Other)
  Sender: FDA-Public Use
  Company Number: NVSC2020IT297998

PATIENT
  Age: 48 Year
  Sex: Male

DRUGS (1)
  1. ELTROMBOPAG [Suspect]
     Active Substance: ELTROMBOPAG
     Indication: CYTOPENIA
     Dosage: 50 MG, QD
     Route: 065

REACTIONS (3)
  - Acute myeloid leukaemia [Fatal]
  - Liver function test increased [Unknown]
  - Venoocclusive disease [Unknown]
